FAERS Safety Report 7015549-5 (Version None)
Quarter: 2010Q3

REPORT INFORMATION
  Report Type: 
  Country: None (occurrence: None)
  Receive Date: 20100922
  Receipt Date: 20100910
  Transmission Date: 20110219
  Serious: Yes (Hospitalization)
  Sender: FDA-Public Use
  Company Number: 2010JP005201

PATIENT
  Age: 73 Year
  Sex: Male

DRUGS (5)
  1. ALOXI [Suspect]
     Indication: PROPHYLAXIS OF NAUSEA AND VOMITING
     Dosage: 0.75 MG, SINGLE, INTRAVENOUS
     Route: 042
     Dates: start: 20100902, end: 20100902
  2. TS 1 (GIMERACIL, OTERACIL POTASSIUM, TEGAFUR) [Suspect]
     Indication: METASTATIC GASTRIC CANCER
     Dosage: 50 MG, BID, ORAL
     Route: 048
     Dates: start: 20100826, end: 20100906
  3. CISPLATIN [Suspect]
     Indication: METASTATIC GASTRIC CANCER
     Dosage: 100 MG, QD, IV DRIP
     Route: 041
     Dates: start: 20100902, end: 20100902
  4. EMEND [Suspect]
     Indication: PROPHYLAXIS OF NAUSEA AND VOMITING
     Dosage: ORAL
     Route: 048
     Dates: start: 20100902
  5. ANTIHYPERTENSIVES [Concomitant]

REACTIONS (3)
  - BLOOD PRESSURE DECREASED [None]
  - CARDIAC FAILURE CONGESTIVE [None]
  - RESPIRATORY DISORDER [None]
